FAERS Safety Report 23016949 (Version 1)
Quarter: 2023Q4

REPORT INFORMATION
  Report Type: Spontaneous
  Country: US (occurrence: US)
  Receive Date: 20231002
  Receipt Date: 20231002
  Transmission Date: 20240110
  Serious: No
  Sender: FDA-Public Use
  Company Number: US-drreddys-LIT/USA/23/0176721

PATIENT
  Age: 21 Year
  Sex: Male

DRUGS (5)
  1. CLONIDINE [Suspect]
     Active Substance: CLONIDINE
     Indication: Isodicentric chromosome 15 syndrome
  2. METHYLPHENIDATE HYDROCHLORIDE [Suspect]
     Active Substance: METHYLPHENIDATE HYDROCHLORIDE
     Indication: Isodicentric chromosome 15 syndrome
  3. ATOMOXETINE HYDROCHLORIDE [Suspect]
     Active Substance: ATOMOXETINE HYDROCHLORIDE
     Indication: Isodicentric chromosome 15 syndrome
  4. QUETIAPINE [Suspect]
     Active Substance: QUETIAPINE
     Indication: Isodicentric chromosome 15 syndrome
  5. MELATONIN [Suspect]
     Active Substance: MELATONIN
     Indication: Isodicentric chromosome 15 syndrome

REACTIONS (1)
  - Drug ineffective for unapproved indication [Unknown]
